FAERS Safety Report 25145259 (Version 2)
Quarter: 2025Q2

REPORT INFORMATION
  Report Type: Spontaneous
  Country: PK (occurrence: PK)
  Receive Date: 20250401
  Receipt Date: 20250520
  Transmission Date: 20250717
  Serious: Yes (Other)
  Sender: AMGEN
  Company Number: PK-PFIZER INC-PV202400092134

PATIENT
  Age: 74 Year
  Sex: Female
  Weight: 86 kg

DRUGS (9)
  1. ENBREL [Suspect]
     Active Substance: ETANERCEPT
     Indication: Rheumatoid arthritis
     Dosage: 50 MG, WEEKLY, AFTER MEAL, CONTINUE, SATURDAY
     Route: 058
     Dates: start: 20240722
  2. METHOTREXATE [Concomitant]
     Active Substance: METHOTREXATE
     Dosage: 1 CC, EVERY SUNDAY 2 HOURS AFTER BREAKFAST
     Dates: start: 2006
  3. HYDROXYCHLOROQUINE SULFATE [Concomitant]
     Active Substance: HYDROXYCHLOROQUINE SULFATE
     Dosage: AFTER MEAL
  4. DELTACORTRIL [Concomitant]
     Active Substance: PREDNISOLONE
     Dosage: 1.5 TABLET AFTER MEAL
  5. FOLIC ACID [Concomitant]
     Active Substance: FOLIC ACID
     Dosage: OFF AT THE DAY OF METHOTREXATE
  6. DICLOFENAC SODIUM [Concomitant]
     Active Substance: DICLOFENAC SODIUM
     Dosage: UNK, 3X/DAY
     Route: 061
  7. Osteocare calcium magnesium vitamin d3 [Concomitant]
     Dosage: AFTER MEAL
  8. Sunny d [Concomitant]
  9. Risek [Concomitant]
     Dosage: BEFORE MEAL FOR 3 WEEKS

REACTIONS (9)
  - Neuropathy peripheral [Unknown]
  - Pain in extremity [Unknown]
  - Tendonitis [Unknown]
  - Synovitis [Unknown]
  - Tendon disorder [Unknown]
  - Burning sensation [Unknown]
  - Diabetic neuropathy [Unknown]
  - Rheumatoid nodule [Unknown]
  - Cyst [Unknown]
